FAERS Safety Report 25621760 (Version 1)
Quarter: 2025Q3

REPORT INFORMATION
  Report Type: Other
  Country: CH (occurrence: CH)
  Receive Date: 20250730
  Receipt Date: 20250730
  Transmission Date: 20251021
  Serious: Yes (Hospitalization, Other)
  Sender: CAPLIN STERILES LIMITED
  Company Number: CH-Caplin Steriles Limited-2181500

PATIENT
  Age: 32 Year
  Sex: Female

DRUGS (10)
  1. TRANEXAMIC ACID [Suspect]
     Active Substance: TRANEXAMIC ACID
     Indication: Procedural haemorrhage
  2. EPHEDRINE [Concomitant]
     Active Substance: EPHEDRINE
  3. SUGAMMADEX [Concomitant]
     Active Substance: SUGAMMADEX
  4. SUFENTANIL CITRATE [Concomitant]
     Active Substance: SUFENTANIL CITRATE
  5. SUCCINYLCHOLINE CHLORIDE [Concomitant]
     Active Substance: SUCCINYLCHOLINE CHLORIDE
  6. SEVOFLURANE [Concomitant]
     Active Substance: SEVOFLURANE
  7. ROCURONIUM [Concomitant]
     Active Substance: ROCURONIUM BROMIDE
  8. PROPOFOL [Concomitant]
     Active Substance: PROPOFOL
  9. KETAMINE HYDROCHLORIDE [Concomitant]
     Active Substance: KETAMINE HYDROCHLORIDE
  10. PHENYLEPHRINE [Concomitant]
     Active Substance: PHENYLEPHRINE

REACTIONS (2)
  - Dyschromatopsia [Recovered/Resolved]
  - Blindness transient [Recovered/Resolved]
